FAERS Safety Report 24423756 (Version 2)
Quarter: 2024Q4

REPORT INFORMATION
  Report Type: Report from Study
  Country: US (occurrence: US)
  Receive Date: 20241010
  Receipt Date: 20241105
  Transmission Date: 20250114
  Serious: Yes (Death, Hospitalization)
  Sender: GILEAD
  Company Number: US-GILEAD-2024-0690515

PATIENT
  Sex: Male

DRUGS (1)
  1. AMBRISENTAN [Suspect]
     Active Substance: AMBRISENTAN
     Indication: Pulmonary hypertension
     Dosage: 5 MG, QD
     Route: 065
     Dates: start: 20240815

REACTIONS (3)
  - Rhinovirus infection [Fatal]
  - Upper respiratory tract infection [Unknown]
  - Off label use [Not Recovered/Not Resolved]
